FAERS Safety Report 5893023-7 (Version None)
Quarter: 2008Q3

REPORT INFORMATION
  Report Type: 
  Country: None (occurrence: None)
  Receive Date: 20080919
  Receipt Date: 20080905
  Transmission Date: 20090109
  Serious: Yes (Death)
  Sender: FDA-Public Use
  Company Number: 2008S1016433

PATIENT
  Age: 18 Year
  Sex: Female

DRUGS (7)
  1. CYSTAGON [Suspect]
     Indication: CYSTINOSIS
     Dosage: ORAL; 40 MG/KG DAILY ORAL
     Route: 048
     Dates: start: 19980717
  2. KALINOR [Concomitant]
  3. ROCALTROL [Concomitant]
  4. VITAMIN B6 [Concomitant]
  5. EPOGEN [Concomitant]
  6. CALCIUM CARBONATE [Concomitant]
  7. SHOHL'S [Concomitant]

REACTIONS (3)
  - PERITONITIS [None]
  - PHARMACEUTICAL PRODUCT COMPLAINT [None]
  - VOMITING [None]
